FAERS Safety Report 4627197-2 (Version None)
Quarter: 2005Q1

REPORT INFORMATION
  Report Type: 
  Country: None (occurrence: None)
  Receive Date: 20050330
  Receipt Date: 20050322
  Transmission Date: 20050727
  Serious: Yes (Death)
  Sender: FDA-Public Use
  Company Number: HQWYE332824MAR05

PATIENT

DRUGS (4)
  1. RAPAMUNE [Suspect]
     Indication: PROPHYLAXIS
     Dosage: INITIAL LOADING DOSE OF 4 MG IMMEDIATELY ORAL
     Route: 048
  2. RAPAMUNE [Suspect]
     Dosage: MAINTENANCE DOSE OF 2 MG PER DAY FOR 30 DAYS ORAL
     Route: 048
  3. CLOPIDOGREL BISULFATE [Concomitant]
  4. ASPIRIN [Concomitant]

REACTIONS (1)
  - ACUTE MYOCARDIAL INFARCTION [None]
